FAERS Safety Report 17349723 (Version 19)
Quarter: 2025Q1

REPORT INFORMATION
  Report Type: Report from Study
  Country: DE (occurrence: DE)
  Receive Date: 20200130
  Receipt Date: 20250224
  Transmission Date: 20250409
  Serious: Yes (Hospitalization, Other)
  Sender: MYLAN
  Company Number: DE-ROCHE-2126374

PATIENT
  Age: 39 Year
  Sex: Female
  Weight: 70 kg

DRUGS (136)
  1. LYRICA [Suspect]
     Active Substance: PREGABALIN
     Indication: Pain
     Dosage: 250 MG, DAILY (100MG-MORNING-0-150MG -EVENING)
  2. LYRICA [Suspect]
     Active Substance: PREGABALIN
     Dosage: 250 MG, DAILY (100MG-MORNING-0-150MG -EVENING)
  3. LYRICA [Suspect]
     Active Substance: PREGABALIN
     Dosage: 250 MG, DAILY (100MG-MORNING-0-150MG -EVENING)
     Route: 048
  4. LYRICA [Suspect]
     Active Substance: PREGABALIN
     Dosage: 250 MG, DAILY (100MG-MORNING-0-150MG -EVENING)
     Route: 048
  5. LYRICA [Suspect]
     Active Substance: PREGABALIN
     Dosage: 125 MG DAILY (50 MG-MORNING, 75 MG-EVENING)
     Route: 048
  6. LYRICA [Suspect]
     Active Substance: PREGABALIN
     Dosage: 125 MG DAILY (50 MG-MORNING, 75 MG-EVENING)
  7. LYRICA [Suspect]
     Active Substance: PREGABALIN
     Dosage: 125 MG DAILY (50 MG-MORNING, 75 MG-EVENING)
  8. LYRICA [Suspect]
     Active Substance: PREGABALIN
     Dosage: 125 MG DAILY (50 MG-MORNING, 75 MG-EVENING)
     Route: 048
  9. LYRICA [Suspect]
     Active Substance: PREGABALIN
     Dosage: 200 MG, DAILY (MORNING-75 MG, 125 MG-EVENING)
  10. LYRICA [Suspect]
     Active Substance: PREGABALIN
     Dosage: 200 MG, DAILY (MORNING-75 MG, 125 MG-EVENING)
  11. LYRICA [Suspect]
     Active Substance: PREGABALIN
     Dosage: 200 MG, DAILY (MORNING-75 MG, 125 MG-EVENING)
     Route: 048
  12. LYRICA [Suspect]
     Active Substance: PREGABALIN
     Dosage: 200 MG, DAILY (MORNING-75 MG, 125 MG-EVENING)
     Route: 048
  13. LYRICA [Suspect]
     Active Substance: PREGABALIN
  14. LYRICA [Suspect]
     Active Substance: PREGABALIN
  15. LYRICA [Suspect]
     Active Substance: PREGABALIN
     Route: 048
  16. LYRICA [Suspect]
     Active Substance: PREGABALIN
     Route: 048
  17. LYRICA [Suspect]
     Active Substance: PREGABALIN
     Dosage: 100 MG DAILY (25 MG-MORNING, 75 MG-EVENING)
     Route: 048
  18. LYRICA [Suspect]
     Active Substance: PREGABALIN
     Dosage: 100 MG DAILY (25 MG-MORNING, 75 MG-EVENING)
  19. LYRICA [Suspect]
     Active Substance: PREGABALIN
     Dosage: 100 MG DAILY (25 MG-MORNING, 75 MG-EVENING)
  20. LYRICA [Suspect]
     Active Substance: PREGABALIN
     Dosage: 100 MG DAILY (25 MG-MORNING, 75 MG-EVENING)
     Route: 048
  21. LYRICA [Suspect]
     Active Substance: PREGABALIN
  22. LYRICA [Suspect]
     Active Substance: PREGABALIN
  23. LYRICA [Suspect]
     Active Substance: PREGABALIN
     Route: 048
  24. LYRICA [Suspect]
     Active Substance: PREGABALIN
     Route: 048
  25. LYRICA [Suspect]
     Active Substance: PREGABALIN
  26. LYRICA [Suspect]
     Active Substance: PREGABALIN
  27. LYRICA [Suspect]
     Active Substance: PREGABALIN
     Route: 065
  28. LYRICA [Suspect]
     Active Substance: PREGABALIN
     Route: 065
  29. LYRICA [Suspect]
     Active Substance: PREGABALIN
     Dosage: 50 MG, 2X/DAY
  30. LYRICA [Suspect]
     Active Substance: PREGABALIN
     Dosage: 50 MG, 2X/DAY
  31. LYRICA [Suspect]
     Active Substance: PREGABALIN
     Dosage: 50 MG, 2X/DAY
     Route: 065
  32. LYRICA [Suspect]
     Active Substance: PREGABALIN
     Dosage: 50 MG, 2X/DAY
     Route: 065
  33. LYRICA [Suspect]
     Active Substance: PREGABALIN
     Dosage: 100 MILLIGRAM, QD
  34. LYRICA [Suspect]
     Active Substance: PREGABALIN
     Dosage: 100 MILLIGRAM, QD
  35. LYRICA [Suspect]
     Active Substance: PREGABALIN
     Dosage: 100 MILLIGRAM, QD
     Route: 048
  36. LYRICA [Suspect]
     Active Substance: PREGABALIN
     Dosage: 100 MILLIGRAM, QD
     Route: 048
  37. LYRICA [Suspect]
     Active Substance: PREGABALIN
  38. LYRICA [Suspect]
     Active Substance: PREGABALIN
     Route: 065
  39. LYRICA [Suspect]
     Active Substance: PREGABALIN
  40. LYRICA [Suspect]
     Active Substance: PREGABALIN
     Route: 065
  41. OCREVUS [Suspect]
     Active Substance: OCRELIZUMAB
     Indication: Relapsing-remitting multiple sclerosis
     Route: 042
  42. OCREVUS [Suspect]
     Active Substance: OCRELIZUMAB
  43. OCREVUS [Suspect]
     Active Substance: OCRELIZUMAB
  44. OCREVUS [Suspect]
     Active Substance: OCRELIZUMAB
     Route: 042
  45. OCREVUS [Suspect]
     Active Substance: OCRELIZUMAB
  46. OCREVUS [Suspect]
     Active Substance: OCRELIZUMAB
  47. OCREVUS [Suspect]
     Active Substance: OCRELIZUMAB
     Route: 042
  48. OCREVUS [Suspect]
     Active Substance: OCRELIZUMAB
     Route: 042
  49. OCREVUS [Suspect]
     Active Substance: OCRELIZUMAB
  50. OCREVUS [Suspect]
     Active Substance: OCRELIZUMAB
  51. OCREVUS [Suspect]
     Active Substance: OCRELIZUMAB
     Route: 042
  52. OCREVUS [Suspect]
     Active Substance: OCRELIZUMAB
     Route: 042
  53. OCREVUS [Suspect]
     Active Substance: OCRELIZUMAB
  54. OCREVUS [Suspect]
     Active Substance: OCRELIZUMAB
  55. OCREVUS [Suspect]
     Active Substance: OCRELIZUMAB
     Route: 042
  56. OCREVUS [Suspect]
     Active Substance: OCRELIZUMAB
     Route: 042
  57. OCREVUS [Suspect]
     Active Substance: OCRELIZUMAB
  58. OCREVUS [Suspect]
     Active Substance: OCRELIZUMAB
     Route: 042
  59. OCREVUS [Suspect]
     Active Substance: OCRELIZUMAB
  60. OCREVUS [Suspect]
     Active Substance: OCRELIZUMAB
     Route: 042
  61. OCREVUS [Suspect]
     Active Substance: OCRELIZUMAB
     Route: 042
  62. OCREVUS [Suspect]
     Active Substance: OCRELIZUMAB
  63. OCREVUS [Suspect]
     Active Substance: OCRELIZUMAB
  64. OCREVUS [Suspect]
     Active Substance: OCRELIZUMAB
     Route: 042
  65. OCREVUS [Suspect]
     Active Substance: OCRELIZUMAB
     Route: 042
  66. OCREVUS [Suspect]
     Active Substance: OCRELIZUMAB
  67. OCREVUS [Suspect]
     Active Substance: OCRELIZUMAB
  68. OCREVUS [Suspect]
     Active Substance: OCRELIZUMAB
     Route: 042
  69. OCREVUS [Suspect]
     Active Substance: OCRELIZUMAB
  70. OCREVUS [Suspect]
     Active Substance: OCRELIZUMAB
  71. OCREVUS [Suspect]
     Active Substance: OCRELIZUMAB
     Route: 042
  72. OCREVUS [Suspect]
     Active Substance: OCRELIZUMAB
     Route: 042
  73. OCREVUS [Suspect]
     Active Substance: OCRELIZUMAB
     Route: 042
  74. OCREVUS [Suspect]
     Active Substance: OCRELIZUMAB
  75. OCREVUS [Suspect]
     Active Substance: OCRELIZUMAB
  76. OCREVUS [Suspect]
     Active Substance: OCRELIZUMAB
     Route: 042
  77. OCREVUS [Suspect]
     Active Substance: OCRELIZUMAB
  78. OCREVUS [Suspect]
     Active Substance: OCRELIZUMAB
  79. OCREVUS [Suspect]
     Active Substance: OCRELIZUMAB
     Route: 065
  80. OCREVUS [Suspect]
     Active Substance: OCRELIZUMAB
     Route: 065
  81. OCREVUS [Suspect]
     Active Substance: OCRELIZUMAB
  82. OCREVUS [Suspect]
     Active Substance: OCRELIZUMAB
  83. OCREVUS [Suspect]
     Active Substance: OCRELIZUMAB
     Route: 042
  84. OCREVUS [Suspect]
     Active Substance: OCRELIZUMAB
     Route: 042
  85. OCREVUS [Suspect]
     Active Substance: OCRELIZUMAB
  86. OCREVUS [Suspect]
     Active Substance: OCRELIZUMAB
     Route: 042
  87. OCREVUS [Suspect]
     Active Substance: OCRELIZUMAB
  88. OCREVUS [Suspect]
     Active Substance: OCRELIZUMAB
     Route: 042
  89. COMIRNATY (TOZINAMERAN) [Suspect]
     Active Substance: TOZINAMERAN
     Indication: Product used for unknown indication
  90. COMIRNATY (TOZINAMERAN) [Suspect]
     Active Substance: TOZINAMERAN
     Route: 065
  91. COMIRNATY (TOZINAMERAN) [Suspect]
     Active Substance: TOZINAMERAN
     Route: 065
  92. COMIRNATY (TOZINAMERAN) [Suspect]
     Active Substance: TOZINAMERAN
  93. VESIKUR [Concomitant]
     Active Substance: SOLIFENACIN SUCCINATE
     Indication: Product used for unknown indication
     Dosage: 10 MG, 1X/DAY (0-1-0)
  94. VESIKUR [Concomitant]
     Active Substance: SOLIFENACIN SUCCINATE
     Dosage: 10 MG, 1X/DAY (0-1-0)
     Route: 065
  95. VESIKUR [Concomitant]
     Active Substance: SOLIFENACIN SUCCINATE
     Dosage: 10 MG, 1X/DAY (0-1-0)
     Route: 065
  96. VESIKUR [Concomitant]
     Active Substance: SOLIFENACIN SUCCINATE
     Dosage: 10 MG, 1X/DAY (0-1-0)
  97. LEVOTHYROXINE [Concomitant]
     Active Substance: LEVOTHYROXINE
     Indication: Hypothyroidism
     Dosage: 25 MG, 1X/DAY (1-0-0)
  98. LEVOTHYROXINE [Concomitant]
     Active Substance: LEVOTHYROXINE
     Dosage: 25 MG, 1X/DAY (1-0-0)
     Route: 048
  99. LEVOTHYROXINE [Concomitant]
     Active Substance: LEVOTHYROXINE
     Dosage: 25 MG, 1X/DAY (1-0-0)
     Route: 048
  100. LEVOTHYROXINE [Concomitant]
     Active Substance: LEVOTHYROXINE
     Dosage: 25 MG, 1X/DAY (1-0-0)
  101. Paracodin [Concomitant]
     Indication: Product used for unknown indication
  102. Paracodin [Concomitant]
     Route: 065
  103. Paracodin [Concomitant]
     Route: 065
  104. Paracodin [Concomitant]
  105. CARVEDILOL [Concomitant]
     Active Substance: CARVEDILOL
     Indication: Hypertension
     Dosage: 12.5 MG, 1X/DAY (1-0-0)
  106. CARVEDILOL [Concomitant]
     Active Substance: CARVEDILOL
     Dosage: 12.5 MG, 1X/DAY (1-0-0)
  107. CARVEDILOL [Concomitant]
     Active Substance: CARVEDILOL
     Dosage: 12.5 MG, 1X/DAY (1-0-0)
     Route: 048
  108. CARVEDILOL [Concomitant]
     Active Substance: CARVEDILOL
     Dosage: 12.5 MG, 1X/DAY (1-0-0)
     Route: 048
  109. CARVEDILOL [Concomitant]
     Active Substance: CARVEDILOL
     Dosage: 6.25 MG, 1X/DAY (IN THE MORNING, 1-0-0)
  110. CARVEDILOL [Concomitant]
     Active Substance: CARVEDILOL
     Dosage: 6.25 MG, 1X/DAY (IN THE MORNING, 1-0-0)
  111. CARVEDILOL [Concomitant]
     Active Substance: CARVEDILOL
     Dosage: 6.25 MG, 1X/DAY (IN THE MORNING, 1-0-0)
     Route: 048
  112. CARVEDILOL [Concomitant]
     Active Substance: CARVEDILOL
     Dosage: 6.25 MG, 1X/DAY (IN THE MORNING, 1-0-0)
     Route: 048
  113. CARVEDILOL [Concomitant]
     Active Substance: CARVEDILOL
     Dosage: 6.25 MG, 1X/DAY
  114. CARVEDILOL [Concomitant]
     Active Substance: CARVEDILOL
     Dosage: 6.25 MG, 1X/DAY
     Route: 048
  115. CARVEDILOL [Concomitant]
     Active Substance: CARVEDILOL
     Dosage: 6.25 MG, 1X/DAY
  116. CARVEDILOL [Concomitant]
     Active Substance: CARVEDILOL
     Dosage: 6.25 MG, 1X/DAY
     Route: 048
  117. OXCARBAZEPINE [Concomitant]
     Active Substance: OXCARBAZEPINE
     Indication: Pain
     Dosage: 150 MG, 2X/DAY
  118. OXCARBAZEPINE [Concomitant]
     Active Substance: OXCARBAZEPINE
     Indication: Trigeminal neuralgia
     Dosage: 150 MG, 2X/DAY
  119. OXCARBAZEPINE [Concomitant]
     Active Substance: OXCARBAZEPINE
     Dosage: 150 MG, 2X/DAY
     Route: 065
  120. OXCARBAZEPINE [Concomitant]
     Active Substance: OXCARBAZEPINE
     Dosage: 150 MG, 2X/DAY
     Route: 065
  121. OXCARBAZEPINE [Concomitant]
     Active Substance: OXCARBAZEPINE
     Dosage: 150 MG IN MORNING, 100 MG IN EVENING (-1-0-1)
  122. OXCARBAZEPINE [Concomitant]
     Active Substance: OXCARBAZEPINE
     Dosage: 150 MG IN MORNING, 100 MG IN EVENING (-1-0-1)
  123. OXCARBAZEPINE [Concomitant]
     Active Substance: OXCARBAZEPINE
     Dosage: 150 MG IN MORNING, 100 MG IN EVENING (-1-0-1)
     Route: 065
  124. OXCARBAZEPINE [Concomitant]
     Active Substance: OXCARBAZEPINE
     Dosage: 150 MG IN MORNING, 100 MG IN EVENING (-1-0-1)
     Route: 065
  125. OXCARBAZEPINE [Concomitant]
     Active Substance: OXCARBAZEPINE
  126. OXCARBAZEPINE [Concomitant]
     Active Substance: OXCARBAZEPINE
     Route: 065
  127. OXCARBAZEPINE [Concomitant]
     Active Substance: OXCARBAZEPINE
  128. OXCARBAZEPINE [Concomitant]
     Active Substance: OXCARBAZEPINE
     Route: 065
  129. BACLOFEN [Concomitant]
     Active Substance: BACLOFEN
     Indication: Muscle spasticity
     Dosage: 10 MG, 1X/DAY (0-0-1)
  130. BACLOFEN [Concomitant]
     Active Substance: BACLOFEN
     Dosage: 10 MG, 1X/DAY (0-0-1)
     Route: 065
  131. BACLOFEN [Concomitant]
     Active Substance: BACLOFEN
     Dosage: 10 MG, 1X/DAY (0-0-1)
     Route: 065
  132. BACLOFEN [Concomitant]
     Active Substance: BACLOFEN
     Dosage: 10 MG, 1X/DAY (0-0-1)
  133. NORSPAN [Concomitant]
     Active Substance: BUPRENORPHINE
     Indication: Pain
     Dosage: WEEKLY REPLACEMENT (PAIN PATCH;CHANGED 1X WEEKLY)
  134. NORSPAN [Concomitant]
     Active Substance: BUPRENORPHINE
     Dosage: WEEKLY REPLACEMENT (PAIN PATCH;CHANGED 1X WEEKLY)
     Route: 062
  135. NORSPAN [Concomitant]
     Active Substance: BUPRENORPHINE
     Dosage: WEEKLY REPLACEMENT (PAIN PATCH;CHANGED 1X WEEKLY)
     Route: 062
  136. NORSPAN [Concomitant]
     Active Substance: BUPRENORPHINE
     Dosage: WEEKLY REPLACEMENT (PAIN PATCH;CHANGED 1X WEEKLY)

REACTIONS (71)
  - Ovarian adenoma [Recovered/Resolved]
  - Oedema [Not Recovered/Not Resolved]
  - Lipoedema [Not Recovered/Not Resolved]
  - Multiple sclerosis [Not Recovered/Not Resolved]
  - Pulpitis dental [Recovered/Resolved]
  - Abscess [Recovered/Resolved]
  - Trigeminal neuralgia [Recovered/Resolved]
  - Condition aggravated [Recovered/Resolved]
  - Neurodermatitis [Recovered/Resolved]
  - Atrioventricular block [Unknown]
  - Multiple sclerosis relapse [Not Recovered/Not Resolved]
  - Paralysis [Recovered/Resolved]
  - Mitral valve incompetence [Not Recovered/Not Resolved]
  - Dental fistula [Recovered/Resolved]
  - Automatic bladder [Recovered/Resolved]
  - Genital infection female [Unknown]
  - Arrhythmia [Recovered/Resolved]
  - Optic neuritis [Recovering/Resolving]
  - Tooth fracture [Recovered/Resolved]
  - Lymphoedema [Not Recovered/Not Resolved]
  - Vocal cord inflammation [Recovered/Resolved]
  - Abscess oral [Recovered/Resolved]
  - Hypotension [Not Recovered/Not Resolved]
  - Agitation [Recovered/Resolved]
  - Drug ineffective [Unknown]
  - Fatigue [Recovered/Resolved]
  - Nausea [Recovered/Resolved]
  - Abdominal pain upper [Recovered/Resolved]
  - Viral titre decreased [Recovered/Resolved]
  - Skin papilloma [Recovered/Resolved]
  - Sensory disturbance [Not Recovered/Not Resolved]
  - Auditory disorder [Recovered/Resolved]
  - Blood blister [Recovered/Resolved]
  - Dysuria [Recovered/Resolved]
  - Fluid retention [Not Recovered/Not Resolved]
  - Menstruation delayed [Recovered/Resolved]
  - Bladder disorder [Not Recovered/Not Resolved]
  - Hypersensitivity [Recovered/Resolved]
  - Eczema [Recovered/Resolved]
  - Tooth dislocation [Not Recovered/Not Resolved]
  - Neutrophil count increased [Recovered/Resolved]
  - Renal cyst [Not Recovered/Not Resolved]
  - Chest pain [Not Recovered/Not Resolved]
  - Vascular calcification [Not Recovered/Not Resolved]
  - Lymphocyte count decreased [Recovering/Resolving]
  - Blood cholesterol increased [Recovering/Resolving]
  - Neuralgia [Recovered/Resolved]
  - Asthenia [Recovered/Resolved]
  - Neutrophil count increased [Recovered/Resolved]
  - Gait disturbance [Recovering/Resolving]
  - Back pain [Recovered/Resolved]
  - Musculoskeletal chest pain [Recovered/Resolved]
  - Eosinophilic oesophagitis [Not Recovered/Not Resolved]
  - Hordeolum [Recovering/Resolving]
  - Gastrointestinal disorder [Not Recovered/Not Resolved]
  - Electrocardiogram PR prolongation [Unknown]
  - Dysphagia [Not Recovered/Not Resolved]
  - Oesophageal pain [Recovered/Resolved]
  - Bowel movement irregularity [Unknown]
  - SARS-CoV-2 antibody test negative [Not Recovered/Not Resolved]
  - Weight increased [Not Recovered/Not Resolved]
  - Paraesthesia [Unknown]
  - B-lymphocyte count decreased [Unknown]
  - COVID-19 [Not Recovered/Not Resolved]
  - Lung disorder [Recovered/Resolved]
  - Visual impairment [Not Recovered/Not Resolved]
  - Pyrexia [Recovered/Resolved]
  - Blood immunoglobulin A decreased [Recovering/Resolving]
  - Blood immunoglobulin M decreased [Not Recovered/Not Resolved]
  - Blood immunoglobulin G decreased [Recovering/Resolving]
  - Sinusitis [Recovered/Resolved]

NARRATIVE: CASE EVENT DATE: 20180508
